FAERS Safety Report 7013254-2 (Version None)
Quarter: 2010Q3

REPORT INFORMATION
  Report Type: 
  Country: None (occurrence: None)
  Receive Date: 20100924
  Receipt Date: 20100914
  Transmission Date: 20110219
  Serious: Yes (Hospitalization, Other)
  Sender: FDA-Public Use
  Company Number: US-PERRIGO-10US012999

PATIENT
  Sex: Female
  Weight: 68.027 kg

DRUGS (1)
  1. NITETIME FREE CHRY 6HR LIQ 041 [Suspect]
     Indication: NASOPHARYNGITIS
     Dosage: 30 ML, SINGLE
     Route: 048
     Dates: start: 20100912, end: 20100912

REACTIONS (10)
  - BLOOD THYROID STIMULATING HORMONE DECREASED [None]
  - DYSPNOEA [None]
  - HEART RATE INCREASED [None]
  - HYPERSENSITIVITY [None]
  - LIP SWELLING [None]
  - PRURITUS [None]
  - RASH GENERALISED [None]
  - THYROXINE DECREASED [None]
  - URTICARIA [None]
  - VITAMIN D DECREASED [None]
